FAERS Safety Report 6870789-0 (Version None)
Quarter: 2010Q3

REPORT INFORMATION
  Report Type: 
  Country: None (occurrence: None)
  Receive Date: 20100723
  Receipt Date: 20091015
  Transmission Date: 20110219
  Serious: No
  Sender: FDA-Public Use
  Company Number: US-MYLANLABS-2009S1018138

PATIENT
  Age: 41 Year
  Sex: Male
  Weight: 70.31 kg

DRUGS (2)
  1. THIOTHIXENE HYDROCHLORIDE [Suspect]
     Indication: DEPRESSION
     Route: 048
     Dates: start: 20070101
  2. THIOTHIXENE HYDROCHLORIDE [Suspect]
     Route: 048
     Dates: start: 20070101

REACTIONS (3)
  - DISSOCIATION [None]
  - DRUG INEFFECTIVE FOR UNAPPROVED INDICATION [None]
  - FEELING ABNORMAL [None]
